APPROVED DRUG PRODUCT: ISOSORBIDE DINITRATE
Active Ingredient: ISOSORBIDE DINITRATE
Strength: 2.5MG **Federal Register determination that product was not discontinued or withdrawn for safety or effectiveness reasons**
Dosage Form/Route: TABLET;SUBLINGUAL
Application: A086033 | Product #001
Applicant: WATSON LABORATORIES INC
Approved: Feb 26, 1988 | RLD: No | RS: No | Type: DISCN